FAERS Safety Report 12712344 (Version 1)
Quarter: 2016Q3

REPORT INFORMATION
  Report Type: Spontaneous
  Country: US (occurrence: US)
  Receive Date: 20160902
  Receipt Date: 20160902
  Transmission Date: 20161109
  Serious: Yes (Other)
  Sender: FDA-Public Use
  Company Number: US-TEVA-667670USA

PATIENT
  Age: 46 Year
  Sex: Female

DRUGS (3)
  1. LISINPRIL [Concomitant]
  2. ZECUITY [Suspect]
     Active Substance: SUMATRIPTAN SUCCINATE
     Indication: MIGRAINE
     Route: 062
     Dates: start: 20160608, end: 20160608
  3. CELEXA [Concomitant]
     Active Substance: CITALOPRAM HYDROBROMIDE

REACTIONS (8)
  - Drug effect incomplete [Unknown]
  - Administration site scab [Recovered/Resolved]
  - Product adhesion issue [Unknown]
  - Product adhesion issue [Unknown]
  - Application site burn [Recovered/Resolved]
  - Wrong technique in product usage process [Unknown]
  - Application site erythema [Recovered/Resolved]
  - Product physical issue [Unknown]

NARRATIVE: CASE EVENT DATE: 20160608
